FAERS Safety Report 19606158 (Version 1)
Quarter: 2021Q3

REPORT INFORMATION
  Report Type: Spontaneous
  Country: US (occurrence: US)
  Receive Date: 20210725
  Receipt Date: 20210725
  Transmission Date: 20211014
  Serious: No
  Sender: FDA-Public Use
  Company Number: US-ASTRAZENECA-2021A601680

PATIENT
  Sex: Male

DRUGS (3)
  1. IMFINZI [Suspect]
     Active Substance: DURVALUMAB
     Indication: ADENOCARCINOMA
     Dosage: EVERY TWO WEEKS
     Route: 042
     Dates: end: 20210423
  2. LYRICA [Concomitant]
     Active Substance: PREGABALIN
  3. OXYCONTIN [Concomitant]
     Active Substance: OXYCODONE HYDROCHLORIDE

REACTIONS (2)
  - Neoplasm [Unknown]
  - Psoriasis [Not Recovered/Not Resolved]
